FAERS Safety Report 9468739 (Version 1)
Quarter: 2013Q3

REPORT INFORMATION
  Report Type: Spontaneous
  Country: NL (occurrence: NL)
  Receive Date: 20130821
  Receipt Date: 20130821
  Transmission Date: 20140515
  Serious: Yes (Death, Other)
  Sender: FDA-Public Use
  Company Number: NL-BAXTER-2013BAX032452

PATIENT
  Age: 80 Year
  Sex: Male

DRUGS (3)
  1. KIOVIG 100 MG/ML OPLOSSING VOOR INFUSIE (2.5 G/25 ML) [Suspect]
     Indication: CHRONIC INFLAMMATORY DEMYELINATING POLYRADICULONEUROPATHY
     Route: 042
  2. KIOVIG 100 MG/ML OPLOSSING VOOR INFUSIE (2.5 G/25 ML) [Suspect]
     Indication: OFF LABEL USE
  3. DEXAMETHASONE [Suspect]
     Indication: CHRONIC INFLAMMATORY DEMYELINATING POLYRADICULONEUROPATHY
     Route: 065

REACTIONS (2)
  - Euthanasia [Fatal]
  - General physical health deterioration [Not Recovered/Not Resolved]
